FAERS Safety Report 24201007 (Version 2)
Quarter: 2025Q2

REPORT INFORMATION
  Report Type: Spontaneous
  Country: AU (occurrence: AU)
  Receive Date: 20240812
  Receipt Date: 20250411
  Transmission Date: 20250716
  Serious: Yes (Other)
  Sender: GLAXOSMITHKLINE
  Company Number: AU-GSKCCFAPAC-Case-01858016_AE-77534

PATIENT

DRUGS (2)
  1. VENTOLIN [Suspect]
     Active Substance: ALBUTEROL SULFATE
     Indication: Product used for unknown indication
  2. VENTOLIN [Suspect]
     Active Substance: ALBUTEROL SULFATE
     Indication: Product used for unknown indication

REACTIONS (11)
  - Lower respiratory tract infection [Unknown]
  - Tachycardia [Unknown]
  - Cough [Unknown]
  - Malaise [Unknown]
  - Illness [Unknown]
  - Dysgeusia [Unknown]
  - Tinnitus [Unknown]
  - Anxiety [Unknown]
  - Hypersensitivity [Unknown]
  - Extra dose administered [Unknown]
  - Product complaint [Unknown]
